FAERS Safety Report 20572753 (Version 1)
Quarter: 2022Q1

REPORT INFORMATION
  Report Type: Report from Study
  Country: CH (occurrence: None)
  Receive Date: 20220309
  Receipt Date: 20220309
  Transmission Date: 20220424
  Serious: Yes (Other)
  Sender: FDA-Public Use
  Company Number: CH-ROCHE-3036258

PATIENT
  Age: 52 Year

DRUGS (4)
  1. RITUXIMAB [Suspect]
     Active Substance: RITUXIMAB
     Indication: Follicular lymphoma
     Dosage: DATE OF MOST RECENT DOSE- 01/MAR/2021
     Route: 058
     Dates: start: 20190603
  2. IBRUTINIB [Suspect]
     Active Substance: IBRUTINIB
     Indication: Follicular lymphoma
     Dosage: DATE OF LAST ADMINISTRATION BEFORE SAE- 15/MAR/2021
     Route: 048
     Dates: start: 20190520
  3. OBINUTUZUMAB [Concomitant]
     Active Substance: OBINUTUZUMAB
     Route: 042
     Dates: start: 20210329, end: 20220110
  4. BENDAMUSTINE [Concomitant]
     Active Substance: BENDAMUSTINE
     Route: 042
     Dates: start: 20210329, end: 20210817

REACTIONS (1)
  - Hodgkin^s disease [Recovered/Resolved with Sequelae]

NARRATIVE: CASE EVENT DATE: 20220215
